FAERS Safety Report 9006886 (Version 1)
Quarter: 2013Q1

REPORT INFORMATION
  Report Type: Spontaneous
  Country: CZ (occurrence: CZ)
  Receive Date: 20130110
  Receipt Date: 20130110
  Transmission Date: 20140127
  Serious: Yes (Other)
  Sender: FDA-Public Use
  Company Number: CZ-JNJFOC-20130103003

PATIENT
  Age: 60 Year
  Sex: Female

DRUGS (2)
  1. ETOMIDATE [Suspect]
     Indication: CUSHING^S SYNDROME
     Route: 042
  2. KETOCONAZOLE [Suspect]
     Indication: CUSHING^S SYNDROME
     Route: 065

REACTIONS (3)
  - Pneumocystis jirovecii pneumonia [Recovering/Resolving]
  - Sepsis [Recovering/Resolving]
  - Off label use [Unknown]
